FAERS Safety Report 25003056 (Version 1)
Quarter: 2025Q1

REPORT INFORMATION
  Report Type: Report from Study
  Country: US (occurrence: None)
  Receive Date: 20250224
  Receipt Date: 20250224
  Transmission Date: 20250408
  Serious: Yes (Death, Hospitalization, Other)
  Sender: NODEN PHARMA
  Company Number: US-Noden Pharma DAC-NOD202502-000033

PATIENT
  Age: 23 Year
  Sex: Male

DRUGS (3)
  1. COCAINE HYDROCHLORIDE [Suspect]
     Active Substance: COCAINE HYDROCHLORIDE
     Indication: Product used for unknown indication
     Route: 048
  2. CANNABIS SATIVA SUBSP. INDICA TOP [Suspect]
     Active Substance: CANNABIS SATIVA SUBSP. INDICA TOP
     Indication: Product used for unknown indication
     Route: 048
  3. MUSHROOM [Suspect]
     Active Substance: CULTIVATED MUSHROOM
     Route: 048

REACTIONS (5)
  - Cardiac arrest [Fatal]
  - Respiratory arrest [Fatal]
  - Death [Fatal]
  - Drug level increased [Fatal]
  - Product use issue [Unknown]
